FAERS Safety Report 23778666 (Version 1)
Quarter: 2024Q2

REPORT INFORMATION
  Report Type: Spontaneous
  Country: AU (occurrence: AU)
  Receive Date: 20240424
  Receipt Date: 20240424
  Transmission Date: 20240716
  Serious: Yes (Other)
  Sender: FDA-Public Use
  Company Number: AU-MYLANLABS-2024M1037003

PATIENT
  Sex: Female

DRUGS (6)
  1. OXYTOCIN [Suspect]
     Active Substance: OXYTOCIN
     Indication: Labour induction
     Dosage: UNK; TRIAL OF INDUCTION OF LABOUR WITH A SYNTOCINON INFUSION WAS COMMENCED
     Route: 064
  2. OXYTOCIN [Suspect]
     Active Substance: OXYTOCIN
     Dosage: 5 DOSAGE FORM; FIVE UNITS INTRAVENOUSLY ADMINISTERED IN DIVIDED DOSE
     Route: 064
  3. OXYTOCIN [Suspect]
     Active Substance: OXYTOCIN
     Dosage: 40 DOSAGE FORM; SYNTONCINON INFUSION WAS IN PROGRESS
     Route: 064
  4. CEFAZOLIN [Suspect]
     Active Substance: CEFAZOLIN
     Indication: Antibiotic prophylaxis
     Dosage: 2 GRAM
     Route: 064
  5. FENTANYL [Suspect]
     Active Substance: FENTANYL\FENTANYL CITRATE
     Indication: Spinal anaesthesia
     Dosage: UNK; SPINAL BLOCK
     Route: 064
  6. BUPIVACAINE [Suspect]
     Active Substance: BUPIVACAINE
     Indication: Spinal anaesthesia
     Dosage: UNK; SPINAL BLOCK
     Route: 064

REACTIONS (2)
  - Foetal distress syndrome [Recovered/Resolved]
  - Foetal exposure during delivery [Recovered/Resolved]
